FAERS Safety Report 13615387 (Version 1)
Quarter: 2017Q2

REPORT INFORMATION
  Report Type: Report from Study
  Country: US (occurrence: BR)
  Receive Date: 20170606
  Receipt Date: 20170606
  Transmission Date: 20170830
  Serious: Yes (Other)
  Sender: FDA-Public Use
  Company Number: US-SUNOVION-2017SUN002386

PATIENT
  Sex: Female

DRUGS (2)
  1. INDACATEROL [Suspect]
     Active Substance: INDACATEROL
     Indication: PRODUCT USED FOR UNKNOWN INDICATION
     Dosage: 300 MG, UNK
     Route: 065
  2. GLYCOPYRROLATE. [Suspect]
     Active Substance: GLYCOPYRROLATE
     Indication: PRODUCT USED FOR UNKNOWN INDICATION
     Dosage: 50 ?G, UNK
     Route: 065

REACTIONS (7)
  - Emphysema [Unknown]
  - Asthenia [Unknown]
  - Dyspnoea [Unknown]
  - Hypoacusis [Unknown]
  - Fatigue [Unknown]
  - Pneumonia [Unknown]
  - Lung disorder [Unknown]
